FAERS Safety Report 24391956 (Version 1)
Quarter: 2024Q4

REPORT INFORMATION
  Report Type: Spontaneous
  Country: RO (occurrence: RO)
  Receive Date: 20241003
  Receipt Date: 20241003
  Transmission Date: 20250115
  Serious: Yes (Other)
  Sender: NOVARTIS
  Company Number: RO-PFIZER INC-PV202400123352

PATIENT
  Age: 60 Year
  Sex: Female

DRUGS (5)
  1. ZOLEDRONIC ACID [Suspect]
     Active Substance: ZOLEDRONIC ACID
     Indication: Breast cancer
     Dosage: 4 MG, QMO (4 MG, MONTHLY)
     Route: 042
     Dates: start: 20190212, end: 202206
  2. LETROZOLE [Suspect]
     Active Substance: LETROZOLE
     Indication: Breast cancer
     Dosage: 2.5 MG, QD (FORMULATION: TABLET)
     Route: 048
     Dates: start: 20190212
  3. IBRANCE [Suspect]
     Active Substance: PALBOCICLIB
     Indication: Breast cancer metastatic
     Dosage: 125 MG, CYCLIC (21 DAYS OUT OF 28)
     Route: 048
     Dates: start: 20190212, end: 20190502
  4. IBRANCE [Suspect]
     Active Substance: PALBOCICLIB
     Dosage: 100 MG, CYCLIC (21 DAYS OUT OF 28)
     Route: 048
     Dates: start: 20190502
  5. DENOSUMAB [Suspect]
     Active Substance: DENOSUMAB
     Indication: Breast cancer
     Dosage: 120 MG, QMO
     Route: 058
     Dates: start: 202206

REACTIONS (2)
  - Neutropenia [Recovered/Resolved with Sequelae]
  - COVID-19 [Recovered/Resolved with Sequelae]
